FAERS Safety Report 25546498 (Version 1)
Quarter: 2025Q3

REPORT INFORMATION
  Report Type: Report from Study
  Country: CA (occurrence: CA)
  Receive Date: 20250713
  Receipt Date: 20250713
  Transmission Date: 20251021
  Serious: Yes (Hospitalization, Other)
  Sender: ABBVIE
  Company Number: CA-ABBVIE-6363854

PATIENT
  Age: 56 Year
  Sex: Male

DRUGS (2)
  1. SKYRIZI [Suspect]
     Active Substance: RISANKIZUMAB-RZAA
     Indication: Psoriasis
     Dosage: FORM STRENGTH: 150MG/ML
     Route: 058
     Dates: start: 20210728
  2. METFORMIN [Concomitant]
     Active Substance: METFORMIN HYDROCHLORIDE
     Indication: Product used for unknown indication

REACTIONS (17)
  - Diabetes mellitus inadequate control [Unknown]
  - Pyrexia [Unknown]
  - Skin ulcer [Unknown]
  - Peripheral swelling [Unknown]
  - Pain in extremity [Unknown]
  - Erythema [Unknown]
  - Chills [Unknown]
  - Wound [Unknown]
  - Soft tissue swelling [Unknown]
  - Cellulitis [Unknown]
  - Diabetic foot [Unknown]
  - Acute kidney injury [Unknown]
  - Flatulence [Unknown]
  - Hypophagia [Unknown]
  - Thrombosis prophylaxis [Unknown]
  - Foot deformity [Unknown]
  - Staphylococcus test positive [Unknown]

NARRATIVE: CASE EVENT DATE: 20250101
